FAERS Safety Report 17371856 (Version 8)
Quarter: 2020Q4

REPORT INFORMATION
  Report Type: Report from Study
  Country: JP (occurrence: JP)
  Receive Date: 20200205
  Receipt Date: 20201113
  Transmission Date: 20210113
  Serious: Yes (Hospitalization)
  Sender: FDA-Public Use
  Company Number: JP-DSJP-DSJ-2020-103987AA

PATIENT
  Age: 44 Year
  Sex: Female
  Weight: 109 kg

DRUGS (31)
  1. SPIRONOLACTONE. [Concomitant]
     Active Substance: SPIRONOLACTONE
     Dosage: 25 MG, AS NEEDED
     Route: 048
     Dates: start: 20190319
  2. THEOPHYLLINE [Concomitant]
     Active Substance: THEOPHYLLINE ANHYDROUS
     Indication: ASTHMA
     Dosage: 200 MG, BID
     Route: 048
     Dates: start: 20181127, end: 20190225
  3. MIDAZOLAM. [Concomitant]
     Active Substance: MIDAZOLAM
     Indication: ARGON PLASMA COAGULATION
     Dosage: 20 MG, SINGLE
     Route: 042
     Dates: start: 20200206, end: 20200206
  4. NEXIUM [Concomitant]
     Active Substance: ESOMEPRAZOLE MAGNESIUM
     Indication: VOMITING
     Dosage: 10 MG, QD
     Route: 048
     Dates: start: 20190115
  5. FERROUS SODIUM CITRATE [Concomitant]
     Active Substance: SODIUM FERROUS CITRATE
     Indication: ANAEMIA
     Dosage: 50 MG, TID
     Route: 048
     Dates: start: 20190611
  6. HALOPERIDOL. [Concomitant]
     Active Substance: HALOPERIDOL
     Indication: ARGON PLASMA COAGULATION
     Dosage: 5 MG, SINGLE
     Route: 042
     Dates: start: 20200206, end: 20200206
  7. TRASTUZUMAB DERUXTECAN. [Suspect]
     Active Substance: TRASTUZUMAB DERUXTECAN
     Dosage: 5.4 MG/KG, ONCE EVERY 3 WK
     Route: 041
     Dates: start: 20190618, end: 20200114
  8. FUROSEMIDE. [Concomitant]
     Active Substance: FUROSEMIDE
     Dosage: 20 MG, AS NEEDED
     Route: 048
     Dates: start: 20190319
  9. SPIRONOLACTONE. [Concomitant]
     Active Substance: SPIRONOLACTONE
     Indication: OEDEMA PERIPHERAL
     Dosage: 25 MG, BID
     Route: 048
     Dates: start: 20180925, end: 20190318
  10. TRASTUZUMAB DERUXTECAN. [Suspect]
     Active Substance: TRASTUZUMAB DERUXTECAN
     Indication: HER2 POSITIVE BREAST CANCER
     Dosage: 5.4 MG/KG, ONCE EVERY 3 WK
     Route: 041
     Dates: start: 20181204, end: 20190521
  11. AMBROXOL HYDROCHLORIDE [Concomitant]
     Active Substance: AMBROXOL HYDROCHLORIDE
     Indication: ASTHMA
     Dosage: 15 MG, TID
     Route: 048
     Dates: start: 20181127, end: 20190225
  12. DIAZEPAM. [Concomitant]
     Active Substance: DIAZEPAM
     Indication: ARGON PLASMA COAGULATION
     Dosage: 20 MG, SINGLE
     Route: 042
     Dates: start: 20200206, end: 20200206
  13. FLUMAZENIL. [Concomitant]
     Active Substance: FLUMAZENIL
     Indication: OESOPHAGEAL VARICEAL LIGATION
     Dosage: 0.5 MG, SINGLE
     Route: 042
     Dates: start: 20200130, end: 20200130
  14. FLUMAZENIL. [Concomitant]
     Active Substance: FLUMAZENIL
     Indication: ARGON PLASMA COAGULATION
     Dosage: 0.5 MG, SINGLE
     Route: 042
     Dates: start: 20200206, end: 20200206
  15. MIDAZOLAM. [Concomitant]
     Active Substance: MIDAZOLAM
     Indication: OESOPHAGEAL VARICEAL LIGATION
     Dosage: 20 MG, SINGLE
     Route: 042
     Dates: start: 20200130, end: 20200130
  16. HEPARIN NA LOCK [Concomitant]
     Active Substance: HEPARIN SODIUM
     Indication: COAGULOPATHY
     Dosage: 10 ML, SINGLE
     Route: 042
     Dates: start: 20200130, end: 20200130
  17. RANMARK [Concomitant]
     Active Substance: DENOSUMAB
     Indication: METASTASES TO BONE
     Dosage: 120 MG, Q4-6W
     Route: 058
     Dates: start: 20161104
  18. DIAZEPAM. [Concomitant]
     Active Substance: DIAZEPAM
     Indication: OESOPHAGEAL VARICEAL LIGATION
     Dosage: 20 MG, SINGLE
     Route: 042
     Dates: start: 20200130, end: 20200130
  19. HALOPERIDOL. [Concomitant]
     Active Substance: HALOPERIDOL
     Indication: OESOPHAGEAL VARICEAL LIGATION
     Dosage: 10 MG, SINGLE
     Route: 042
     Dates: start: 20200130, end: 20200130
  20. HEPARIN NA LOCK [Concomitant]
     Active Substance: HEPARIN SODIUM
     Dosage: 10 ML, SINGLE
     Route: 042
     Dates: start: 20200204, end: 20200204
  21. SOLDEM 3A [Concomitant]
     Active Substance: CARBOHYDRATES\POTASSIUM CHLORIDE\SODIUM CHLORIDE\SODIUM LACTATE
     Indication: PROPHYLAXIS AGAINST DEHYDRATION
     Dosage: 1000 ML, QD
     Route: 042
     Dates: start: 20200130, end: 20200201
  22. ACELIO [Concomitant]
     Active Substance: ACETAMINOPHEN
     Indication: PYREXIA
     Dosage: 500 MG, SINGLE
     Route: 042
     Dates: start: 20200130, end: 20200130
  23. ACELIO [Concomitant]
     Active Substance: ACETAMINOPHEN
     Dosage: 1000 MG, SINGLE
     Route: 042
     Dates: start: 20200206, end: 20200206
  24. FUROSEMIDE. [Concomitant]
     Active Substance: FUROSEMIDE
     Indication: OEDEMA PERIPHERAL
     Dosage: 20 MG, BID
     Route: 048
     Dates: start: 20180925, end: 20190318
  25. GOSHAJINKIGAN [Concomitant]
     Active Substance: HERBALS
     Indication: PERIPHERAL SENSORY NEUROPATHY
     Dosage: 2.5 G, TID
     Route: 048
     Dates: start: 20181002, end: 20190225
  26. NAUZELIN [Concomitant]
     Active Substance: DOMPERIDONE
     Indication: NAUSEA
     Dosage: 10 MG, AS NEEDED
     Route: 048
     Dates: start: 20181225, end: 20190429
  27. FAMOTIDINE. [Concomitant]
     Active Substance: FAMOTIDINE
     Indication: VOMITING
     Dosage: 20 MG, QD
     Route: 048
     Dates: start: 20190820
  28. LACTEC [Concomitant]
     Active Substance: CALCIUM CHLORIDE ANHYDROUS\POTASSIUM CHLORIDE\SODIUM CHLORIDE\SODIUM LACTATE
     Indication: FLUID REPLACEMENT
     Dosage: 500 ML, SINGLE
     Route: 042
     Dates: start: 20200130, end: 20200130
  29. LYRICA [Concomitant]
     Active Substance: PREGABALIN
     Indication: PERIPHERAL SENSORY NEUROPATHY
     Dosage: 150 MG, QD
     Route: 048
     Dates: start: 20181016, end: 20190225
  30. TEPRENONE [Concomitant]
     Active Substance: TEPRENONE
     Indication: VOMITING
     Dosage: 50 MG, TID
     Route: 048
     Dates: start: 20190115, end: 20190318
  31. MAGNESIUM OXIDE. [Concomitant]
     Active Substance: MAGNESIUM OXIDE
     Indication: CONSTIPATION PROPHYLAXIS
     Dosage: 330 MG, AS NEEDED
     Route: 048
     Dates: start: 20190910

REACTIONS (1)
  - Oesophageal varices haemorrhage [Recovered/Resolved]

NARRATIVE: CASE EVENT DATE: 20200130
